FAERS Safety Report 18331395 (Version 4)
Quarter: 2022Q1

REPORT INFORMATION
  Report Type: Spontaneous
  Country: US (occurrence: None)
  Receive Date: 20200930
  Receipt Date: 20220111
  Transmission Date: 20220424
  Serious: Yes (Hospitalization, Other)
  Sender: FDA-Public Use
  Company Number: 2020SF25256

PATIENT
  Age: 19536 Day
  Sex: Male
  Weight: 126.6 kg

DRUGS (50)
  1. FARXIGA [Suspect]
     Active Substance: DAPAGLIFLOZIN PROPANEDIOL
     Indication: Type 2 diabetes mellitus
     Route: 048
     Dates: start: 20150810, end: 20180413
  2. FARXIGA [Suspect]
     Active Substance: DAPAGLIFLOZIN PROPANEDIOL
     Indication: Weight decreased
     Route: 048
     Dates: start: 20150810, end: 20180413
  3. FARXIGA [Suspect]
     Active Substance: DAPAGLIFLOZIN PROPANEDIOL
     Indication: Blood pressure decreased
     Route: 048
     Dates: start: 20150810, end: 20180413
  4. FARXIGA [Suspect]
     Active Substance: DAPAGLIFLOZIN PROPANEDIOL
     Indication: Type 2 diabetes mellitus
     Route: 048
     Dates: start: 20180214
  5. FARXIGA [Suspect]
     Active Substance: DAPAGLIFLOZIN PROPANEDIOL
     Indication: Weight decreased
     Route: 048
     Dates: start: 20180214
  6. FARXIGA [Suspect]
     Active Substance: DAPAGLIFLOZIN PROPANEDIOL
     Indication: Blood pressure decreased
     Route: 048
     Dates: start: 20180214
  7. FARXIGA [Suspect]
     Active Substance: DAPAGLIFLOZIN PROPANEDIOL
     Indication: Type 2 diabetes mellitus
     Route: 048
     Dates: start: 20150810, end: 201805
  8. FARXIGA [Suspect]
     Active Substance: DAPAGLIFLOZIN PROPANEDIOL
     Indication: Weight decreased
     Route: 048
     Dates: start: 20150810, end: 201805
  9. FARXIGA [Suspect]
     Active Substance: DAPAGLIFLOZIN PROPANEDIOL
     Indication: Blood pressure decreased
     Route: 048
     Dates: start: 20150810, end: 201805
  10. PRAVASTATIN [Concomitant]
     Active Substance: PRAVASTATIN
  11. PANTOPRAZOLE [Concomitant]
     Active Substance: PANTOPRAZOLE
  12. CHANTIX [Concomitant]
     Active Substance: VARENICLINE TARTRATE
  13. PREDNISONE [Concomitant]
     Active Substance: PREDNISONE
  14. CYCLOBENZAPRINE [Concomitant]
     Active Substance: CYCLOBENZAPRINE
  15. TERBINAFINE [Concomitant]
     Active Substance: TERBINAFINE
  16. OXYCODONE [Concomitant]
     Active Substance: OXYCODONE
  17. TRAMADOL [Concomitant]
     Active Substance: TRAMADOL
  18. HYDROCODONE [Concomitant]
     Active Substance: HYDROCODONE
  19. ATORVASTATIN [Concomitant]
     Active Substance: ATORVASTATIN
  20. METFORMIN [Concomitant]
     Active Substance: METFORMIN HYDROCHLORIDE
  21. PROMETHAZINE HYDROCHLORIDE/ACETYLSALICYLIC ACID/PHENACETIN/CAFFEINE/DI [Concomitant]
  22. AZITHROMYCIN [Concomitant]
     Active Substance: AZITHROMYCIN
  23. PROAIR HFA [Concomitant]
     Active Substance: ALBUTEROL SULFATE
  24. GLYCYRRHIZIC ACID/SULFAMETHOXAZOLE/AMINOCAPROIC ACID/CHLORPHENAMINE [Concomitant]
  25. HYOSCYAMINE [Concomitant]
     Active Substance: HYOSCYAMINE
  26. KLOR-CON [Concomitant]
     Active Substance: POTASSIUM CHLORIDE
  27. FLUOXETINE [Concomitant]
     Active Substance: FLUOXETINE HYDROCHLORIDE
  28. SODIUM CHLORIDE [Concomitant]
     Active Substance: SODIUM CHLORIDE
  29. MORPHINE [Concomitant]
     Active Substance: MORPHINE
  30. CLINDAMYCIN [Concomitant]
     Active Substance: CLINDAMYCIN
  31. VIGAMOX [Concomitant]
     Active Substance: MOXIFLOXACIN HYDROCHLORIDE
  32. LOTEMAX [Concomitant]
     Active Substance: LOTEPREDNOL ETABONATE
  33. VANCOMYCIN [Concomitant]
     Active Substance: VANCOMYCIN
  34. HEPARIN [Concomitant]
     Active Substance: HEPARIN SODIUM
  35. JARDIANCE [Concomitant]
     Active Substance: EMPAGLIFLOZIN
  36. OZEMPIC [Concomitant]
     Active Substance: SEMAGLUTIDE
  37. TRAZODONE [Concomitant]
     Active Substance: TRAZODONE HYDROCHLORIDE
  38. CRESTOR [Concomitant]
     Active Substance: ROSUVASTATIN CALCIUM
  39. MAXITROL [Concomitant]
     Active Substance: DEXAMETHASONE\NEOMYCIN SULFATE\POLYMYXIN B SULFATE
  40. DILAUDID [Concomitant]
     Active Substance: HYDROMORPHONE HYDROCHLORIDE
  41. LOPRESSOR [Concomitant]
     Active Substance: METOPROLOL TARTRATE
  42. INSULIN ASPART [Concomitant]
     Active Substance: INSULIN ASPART
  43. LEVBID [Concomitant]
     Active Substance: HYOSCYAMINE SULFATE
  44. ACETAMINOPHEN [Concomitant]
     Active Substance: ACETAMINOPHEN
  45. HYDROCODONE [Concomitant]
     Active Substance: HYDROCODONE
  46. VICODIN [Concomitant]
     Active Substance: ACETAMINOPHEN\HYDROCODONE BITARTRATE
  47. CODEINE [Concomitant]
     Active Substance: CODEINE
  48. BACLOFEN [Concomitant]
     Active Substance: BACLOFEN
  49. LIDOCAINE [Concomitant]
     Active Substance: LIDOCAINE
  50. PIPPERCILLIN [Concomitant]

REACTIONS (11)
  - Fournier^s gangrene [Unknown]
  - Anal abscess [Unknown]
  - Abscess [Unknown]
  - Subcutaneous abscess [Unknown]
  - Perineal abscess [Unknown]
  - Pain [Unknown]
  - Injury [Unknown]
  - Scrotal abscess [Unknown]
  - Scrotal swelling [Unknown]
  - Cellulitis of male external genital organ [Unknown]
  - Wound abscess [Unknown]

NARRATIVE: CASE EVENT DATE: 20160525
